FAERS Safety Report 8385841-0 (Version None)
Quarter: 2012Q2

REPORT INFORMATION
  Report Type: 
  Country: None (occurrence: None)
  Receive Date: 20120525
  Receipt Date: 20120516
  Transmission Date: 20120825
  Serious: Yes (Other)
  Sender: FDA-Public Use
  Company Number: JP-JNJFOC-20120312319

PATIENT
  Age: 76 Year
  Sex: Female

DRUGS (55)
  1. TRAMADOL HYDROCHLORIDE AND ACETAMINOPHEN [Suspect]
     Dosage: 1 PER 1 DAY /
     Route: 048
     Dates: start: 20120316, end: 20120321
  2. TRAMADOL HYDROCHLORIDE AND ACETAMINOPHEN [Suspect]
     Dosage: 1 PER 1 DAY /
     Route: 048
     Dates: start: 20120322, end: 20120322
  3. AMARYL [Concomitant]
     Dosage: ONCE DAILY
     Route: 048
     Dates: start: 20120321, end: 20120322
  4. OPALMON [Concomitant]
     Dosage: ONCE DAILY
     Route: 048
     Dates: start: 20120225, end: 20120322
  5. OPALMON [Concomitant]
     Dosage: ONCE DAILY
     Route: 048
     Dates: start: 20120323, end: 20120326
  6. VITAMIN B12 [Concomitant]
     Dosage: ONCE DAILY
     Route: 048
     Dates: start: 20120323, end: 20120326
  7. VOLTAREN [Concomitant]
     Route: 054
     Dates: start: 20120318
  8. VOLTAREN [Concomitant]
     Route: 054
     Dates: start: 20120228
  9. PRIMPERAN TAB [Concomitant]
     Dosage: ONCE DAILY
     Route: 048
     Dates: start: 20120315, end: 20120315
  10. VOLTAREN [Concomitant]
     Route: 054
     Dates: start: 20120319
  11. RINDERON-V [Concomitant]
     Indication: CHEILITIS
     Dosage: ONCE DAILY
     Route: 061
     Dates: start: 20120326
  12. AMARYL [Concomitant]
     Dosage: ONCE DAILY
     Route: 048
     Dates: start: 20120323, end: 20120326
  13. SELBEX [Concomitant]
     Dosage: ONCE DAILY
     Route: 048
     Dates: start: 20120228, end: 20120318
  14. LOXONIN [Concomitant]
     Dosage: ONCE DAILY
     Route: 048
     Dates: start: 20120301, end: 20120301
  15. CONIEL [Concomitant]
     Indication: HYPERTENSION
     Dosage: ONCE DAILY
     Route: 048
     Dates: start: 20120323, end: 20120326
  16. ZETIA [Concomitant]
     Dosage: ONCE DAILY
     Route: 048
     Dates: start: 20120225, end: 20120326
  17. DEPAS [Concomitant]
     Dosage: ONCE DAILY
     Route: 048
     Dates: start: 20120323, end: 20120326
  18. LECICARBON [Concomitant]
     Route: 054
     Dates: start: 20120320, end: 20120320
  19. ALOSENN [Concomitant]
     Indication: CONSTIPATION
     Dosage: ONCE DAILY
     Route: 048
     Dates: start: 20120225, end: 20120326
  20. SELBEX [Concomitant]
     Route: 048
     Dates: start: 20120319, end: 20120326
  21. VOLTAREN [Concomitant]
     Route: 054
     Dates: start: 20120319
  22. PRIMPERAN TAB [Concomitant]
     Dosage: ONCE DAILY
     Route: 048
     Dates: start: 20120227, end: 20120227
  23. ADOFEED [Concomitant]
     Route: 062
     Dates: start: 20120229
  24. ELCATONIN [Concomitant]
     Route: 030
     Dates: start: 20120309, end: 20120309
  25. AN UNKNOWN MEDICATION [Concomitant]
     Route: 058
     Dates: start: 20120322, end: 20120322
  26. AN UNKNOWN MEDICATION [Concomitant]
     Route: 058
     Dates: start: 20120308, end: 20120308
  27. FAMOTIDINE [Concomitant]
     Route: 048
     Dates: start: 20120225, end: 20120227
  28. CONIEL [Concomitant]
     Dosage: ONCE DAILY
     Route: 048
     Dates: start: 20120225, end: 20120322
  29. SELBEX [Concomitant]
     Dosage: ONCE DAILY
     Route: 048
     Dates: start: 20120227, end: 20120227
  30. VOLTAREN [Concomitant]
     Route: 054
     Dates: start: 20120318
  31. ELCATONIN [Concomitant]
     Route: 030
     Dates: start: 20120316, end: 20120316
  32. AN UNKNOWN MEDICATION [Concomitant]
     Route: 058
     Dates: start: 20120315, end: 20120315
  33. SELBEX [Concomitant]
     Route: 048
     Dates: start: 20120228, end: 20120318
  34. MERISLON [Concomitant]
     Dosage: ONCE DAILY
     Route: 048
     Dates: start: 20120225, end: 20120322
  35. JUVELA [Concomitant]
     Dosage: ONCE DAILY
     Route: 048
     Dates: start: 20120225, end: 20120322
  36. PRIMPERAN TAB [Concomitant]
     Dosage: ONCE DAILY
     Route: 048
     Dates: start: 20120228, end: 20120305
  37. LOXONIN [Concomitant]
     Dosage: ONCE DAILY
     Route: 048
     Dates: start: 20120302, end: 20120318
  38. LECICARBON [Concomitant]
     Indication: LIP DRY
     Route: 054
     Dates: start: 20120317, end: 20120317
  39. TRAMADOL HYDROCHLORIDE AND ACETAMINOPHEN [Suspect]
     Indication: PAIN
     Dosage: 2 DF X 1 PER 1 DAY
     Route: 048
     Dates: start: 20120315, end: 20120315
  40. FAMOTIDINE [Concomitant]
     Dosage: ONCE DAILY
     Route: 048
     Dates: start: 20120306, end: 20120322
  41. VALSARTAN [Concomitant]
     Indication: HYPERTENSION
     Dosage: ONCE DAILY
     Route: 048
     Dates: start: 20120225, end: 20120326
  42. DEPAS [Concomitant]
     Dosage: ONCE DAILY
     Route: 048
     Dates: start: 20120225, end: 20120322
  43. VITAMIN B12 [Concomitant]
     Dosage: ONCE DAILY
     Route: 048
     Dates: start: 20120225, end: 20120322
  44. AN UNKNOWN MEDICATION [Concomitant]
     Dosage: ONCE DAILY
     Route: 048
     Dates: start: 20120322, end: 20120326
  45. PRIMPERAN TAB [Concomitant]
     Dosage: ONCE DAILY
     Route: 048
     Dates: start: 20120316, end: 20120321
  46. LAXOBERON [Concomitant]
     Indication: CONSTIPATION
     Route: 048
     Dates: start: 20120316, end: 20120316
  47. ELCATONIN [Concomitant]
     Route: 030
     Dates: start: 20120302, end: 20120302
  48. AMARYL [Concomitant]
     Indication: DIABETES MELLITUS
     Dosage: ONCE DAILY
     Route: 048
     Dates: start: 20120225, end: 20120320
  49. VILDAGLIPTIN [Concomitant]
     Indication: DIABETES MELLITUS
     Dosage: TWICE DAILY
     Route: 048
     Dates: start: 20120225, end: 20120326
  50. FAMOTIDINE [Concomitant]
     Dosage: ONCE DAILY
     Route: 048
     Dates: start: 20120323, end: 20120326
  51. SELBEX [Concomitant]
     Dosage: ONCE DAILY
     Route: 048
     Dates: start: 20120227, end: 20120227
  52. CEROCRAL [Concomitant]
     Dosage: ONCE DAILY
     Route: 048
     Dates: start: 20120225, end: 20120322
  53. ASPIRIN [Concomitant]
     Dosage: ONCE DAILY
     Route: 048
     Dates: start: 20120225, end: 20120322
  54. CLOPIDOGREL BISULFATE [Concomitant]
     Dosage: ONCE DAILY
     Route: 048
     Dates: start: 20120225, end: 20120326
  55. NEXIUM [Concomitant]
     Dosage: ONCE DAILY
     Route: 048
     Dates: start: 20120227, end: 20120305

REACTIONS (2)
  - HALLUCINATION [None]
  - CHEILITIS [None]
